FAERS Safety Report 5086950-4 (Version None)
Quarter: 2006Q3

REPORT INFORMATION
  Report Type: 
  Country: None (occurrence: None)
  Receive Date: 20060821
  Receipt Date: 20060811
  Transmission Date: 20061208
  Serious: Yes (Death, Life-Threatening, Hospitalization, Other)
  Sender: FDA-Public Use
  Company Number: 2006-08-0743

PATIENT
  Age: 61 Year
  Sex: Male

DRUGS (4)
  1. TEMODAL [Suspect]
     Indication: GLIOBLASTOMA
     Dosage: 100MG/M2 ORAL
     Route: 048
     Dates: start: 20040601, end: 20060101
  2. TEMODAL [Suspect]
     Indication: GLIOBLASTOMA
     Dosage: 100MG/M2 ORAL
     Route: 048
     Dates: start: 20040601, end: 20060501
  3. TEMODAL [Suspect]
     Indication: GLIOBLASTOMA
     Dosage: 100MG/M2 ORAL
     Route: 048
     Dates: start: 20060101, end: 20060501
  4. FENANTOIN [Concomitant]

REACTIONS (2)
  - BONE MARROW DISORDER [None]
  - HAEMOLYTIC ANAEMIA [None]
